FAERS Safety Report 4684831-9 (Version None)
Quarter: 2005Q2

REPORT INFORMATION
  Report Type: 
  Country: None (occurrence: None)
  Receive Date: 20050531
  Receipt Date: 20050126
  Transmission Date: 20051028
  Serious: Yes (Other)
  Sender: FDA-Public Use
  Company Number: USA041286069

PATIENT
  Age: 94 Year
  Sex: Male
  Weight: 64 kg

DRUGS (6)
  1. ZYPREXA [Suspect]
     Indication: ANTISOCIAL BEHAVIOUR
     Dosage: 2.5 MG
     Dates: start: 20041129
  2. BUSPAR [Concomitant]
  3. BUMEX [Concomitant]
  4. POTASSIUM CHLORIDE [Concomitant]
  5. NORVASC [Concomitant]
  6. ACETYLSALICYLIC ACID SRT [Concomitant]

REACTIONS (2)
  - DEPRESSED LEVEL OF CONSCIOUSNESS [None]
  - SOMNOLENCE [None]
